FAERS Safety Report 7013460-7 (Version None)
Quarter: 2010Q3

REPORT INFORMATION
  Report Type: 
  Country: None (occurrence: None)
  Receive Date: 20100924
  Receipt Date: 20100920
  Transmission Date: 20110219
  Serious: Yes (Hospitalization)
  Sender: FDA-Public Use
  Company Number: US-PFIZER INC-2010119535

PATIENT
  Age: 72 Year
  Sex: Female

DRUGS (2)
  1. LIPITOR [Suspect]
     Dosage: UNK
  2. SIMVASTATIN [Suspect]
     Dosage: UNK

REACTIONS (1)
  - DIARRHOEA [None]
